FAERS Safety Report 7639553-9 (Version None)
Quarter: 2011Q3

REPORT INFORMATION
  Report Type: 
  Country: None (occurrence: None)
  Receive Date: 20110727
  Receipt Date: 20110721
  Transmission Date: 20111222
  Serious: Yes (Life-Threatening)
  Sender: FDA-Public Use
  Company Number: CH-GLAXOSMITHKLINE-B0735280A

PATIENT
  Age: 83 Year
  Sex: Female

DRUGS (8)
  1. ARIXTRA [Suspect]
     Indication: PRODUCT USED FOR UNKNOWN INDICATION
     Dosage: 7.5MG PER DAY
     Route: 058
     Dates: start: 20110505, end: 20110511
  2. SINTROM [Suspect]
     Indication: PRODUCT USED FOR UNKNOWN INDICATION
     Route: 048
     Dates: start: 20110505, end: 20110511
  3. AMLODIPINE [Concomitant]
  4. ACETAMINOPHEN [Concomitant]
  5. METHOTREXATE [Concomitant]
  6. TEMGESIC [Concomitant]
  7. PREDNISOLONE [Concomitant]
  8. LEVOTHYROXINE SODIUM [Concomitant]

REACTIONS (8)
  - HAEMOGLOBIN DECREASED [None]
  - CIRCULATORY COLLAPSE [None]
  - SHOCK [None]
  - HAEMATOMA [None]
  - MUSCLE HAEMORRHAGE [None]
  - HYPOTENSION [None]
  - BACK PAIN [None]
  - TACHYCARDIA [None]
